APPROVED DRUG PRODUCT: PIQRAY
Active Ingredient: ALPELISIB
Strength: 50MG
Dosage Form/Route: TABLET;ORAL
Application: N212526 | Product #001
Applicant: NOVARTIS PHARMACEUTICALS CORP
Approved: May 24, 2019 | RLD: Yes | RS: No | Type: RX

PATENTS:
Patent 8227462 | Expires: Apr 29, 2033
Patent 8476268 | Expires: Sep 10, 2029

EXCLUSIVITY:
Code: I-937 | Date: Jan 18, 2027